FAERS Safety Report 10185755 (Version 2)
Quarter: 2014Q2

REPORT INFORMATION
  Report Type: Spontaneous
  Country: IT (occurrence: IT)
  Receive Date: 20140521
  Receipt Date: 20140524
  Transmission Date: 20141212
  Serious: Yes (Other)
  Sender: FDA-Public Use
  Company Number: PHHY2014IT060974

PATIENT
  Age: 61 Year
  Sex: 0

DRUGS (1)
  1. GILENYA [Suspect]
     Indication: MULTIPLE SCLEROSIS
     Dosage: 0.5 MG, QD
     Route: 048

REACTIONS (4)
  - Fatigue [Unknown]
  - Mood swings [Unknown]
  - Mydriasis [Unknown]
  - Cardiac fibrillation [Unknown]
